FAERS Safety Report 9206749 (Version 6)
Quarter: 2014Q1

REPORT INFORMATION
  Report Type: Spontaneous
  Country: US (occurrence: US)
  Receive Date: 20130403
  Receipt Date: 20140331
  Transmission Date: 20141002
  Serious: No
  Sender: FDA-Public Use
  Company Number: US-VERTEX PHARMACEUTICALS INC.-2013-004376

PATIENT
  Age: 53 Year
  Sex: Male
  Weight: 82 kg

DRUGS (3)
  1. INCIVEK [Suspect]
     Indication: HEPATITIS C
     Dosage: 750 MG, TID
     Route: 048
     Dates: start: 20120822, end: 201211
  2. PEGASYS [Suspect]
     Indication: HEPATITIS C
     Dosage: 180 ?G, QW
     Route: 058
     Dates: start: 20120822, end: 201302
  3. RIBAVIRIN [Suspect]
     Indication: HEPATITIS C
     Dosage: 2 DF, BID
     Route: 048
     Dates: start: 20120822, end: 201302

REACTIONS (2)
  - Abdominal pain [Not Recovered/Not Resolved]
  - Musculoskeletal pain [Not Recovered/Not Resolved]
